FAERS Safety Report 9052880 (Version 1)
Quarter: 2013Q1

REPORT INFORMATION
  Report Type: Spontaneous
  Country: CZ (occurrence: CZ)
  Receive Date: 20130207
  Receipt Date: 20130207
  Transmission Date: 20140127
  Serious: Yes (Disabling)
  Sender: FDA-Public Use
  Company Number: CZ-MYLANLABS-2013S1002252

PATIENT
  Age: 68 Year
  Sex: Female
  Weight: 53 kg

DRUGS (8)
  1. ALENDRONATE [Suspect]
     Indication: OSTEOPOROSIS
     Route: 048
     Dates: start: 20050401, end: 20111026
  2. VIGANTOL /00318501/ [Concomitant]
     Indication: PRODUCT USED FOR UNKNOWN INDICATION
  3. OXAZEPAM [Concomitant]
     Indication: PRODUCT USED FOR UNKNOWN INDICATION
  4. MAXI KALZ [Concomitant]
     Indication: PRODUCT USED FOR UNKNOWN INDICATION
  5. FLAVOBION [Concomitant]
     Indication: PRODUCT USED FOR UNKNOWN INDICATION
     Route: 048
  6. ANAVENOL /00682301/ [Concomitant]
     Indication: PRODUCT USED FOR UNKNOWN INDICATION
     Route: 048
  7. TRAMAL [Concomitant]
     Indication: PRODUCT USED FOR UNKNOWN INDICATION
  8. PIRABENE [Concomitant]
     Indication: PRODUCT USED FOR UNKNOWN INDICATION
     Route: 048

REACTIONS (2)
  - Procedural pain [Not Recovered/Not Resolved]
  - Primary sequestrum [Not Recovered/Not Resolved]
